FAERS Safety Report 4397818-0 (Version None)
Quarter: 2004Q2

REPORT INFORMATION
  Report Type: 
  Country: None (occurrence: None)
  Receive Date: 20040621
  Receipt Date: 20040308
  Transmission Date: 20050107
  Serious: Yes (Death)
  Sender: FDA-Public Use
  Company Number: USA-2004-0013636

PATIENT
  Age: 30 Year
  Sex: Male
  Weight: 95.2 kg

DRUGS (9)
  1. OXYCODONE HCL [Suspect]
  2. HYDROCODONE BITARTRATE [Suspect]
  3. HYDROMORPHONE HYDROCHLORIDE [Suspect]
  4. ALPRAZOLAM [Suspect]
  5. ACETAMINOPHEN [Suspect]
  6. CHLORPHENIRAMINE (CHLORPHENIRAMINE) [Suspect]
  7. DIPHENHYDRAMINE HCL [Suspect]
  8. EPHEDRINE SUL CAP [Suspect]
  9. MIRTAZAPINE [Suspect]

REACTIONS (1)
  - MULTIPLE DRUG OVERDOSE ACCIDENTAL [None]
